FAERS Safety Report 5149929-X (Version None)
Quarter: 2006Q4

REPORT INFORMATION
  Report Type: 
  Country: None (occurrence: None)
  Receive Date: 20061108
  Receipt Date: 20060628
  Transmission Date: 20070319
  Serious: Yes (Other)
  Sender: FDA-Public Use
  Company Number: 2006097410

PATIENT
  Age: 59 Year
  Sex: Female

DRUGS (6)
  1. BEXTRA [Suspect]
     Dosage: 40 MG (20 MG, 2 IN 1 D)
     Dates: start: 20030527
  2. WARFARIN SODIUM [Concomitant]
  3. ESTRADIOL [Concomitant]
  4. HYZAAR [Concomitant]
  5. ZANTAC [Concomitant]
  6. ZOLOFT [Concomitant]

REACTIONS (2)
  - DRUG HYPERSENSITIVITY [None]
  - PITYRIASIS ROSEA [None]
